FAERS Safety Report 15732984 (Version 2)
Quarter: 2018Q4

REPORT INFORMATION
  Report Type: Report from Study
  Country: BR (occurrence: BR)
  Receive Date: 20181218
  Receipt Date: 20181224
  Transmission Date: 20190205
  Serious: Yes (Other)
  Sender: FDA-Public Use
  Company Number: BR-ROCHE-2230987

PATIENT
  Sex: Male

DRUGS (1)
  1. TECENTRIQ [Suspect]
     Active Substance: ATEZOLIZUMAB
     Indication: BLADDER NEOPLASM
     Route: 065

REACTIONS (5)
  - Back pain [Unknown]
  - Drug ineffective [Unknown]
  - Metastases to spine [Unknown]
  - Metastases to lung [Unknown]
  - Pain [Unknown]
